FAERS Safety Report 12308624 (Version 2)
Quarter: 2017Q2

REPORT INFORMATION
  Report Type: Spontaneous
  Country: NL (occurrence: NL)
  Receive Date: 20160427
  Receipt Date: 20170614
  Transmission Date: 20170830
  Serious: Yes (Hospitalization, Other)
  Sender: FDA-Public Use
  Company Number: NL-MACLEODS PHARMACEUTICALS US LTD-MAC2016002662

PATIENT

DRUGS (12)
  1. ATAZANAVIR [Concomitant]
     Active Substance: ATAZANAVIR
     Indication: ANTIRETROVIRAL THERAPY
     Dosage: 150 MG
     Route: 065
  2. LAMIVUDINE/ZIDOVUDINE [Concomitant]
     Active Substance: LAMIVUDINE\ZIDOVUDINE
     Indication: ANTIRETROVIRAL THERAPY
     Dosage: 150/300MG, BID
     Route: 065
  3. LORAZEPAM. [Concomitant]
     Active Substance: LORAZEPAM
     Indication: PRODUCT USED FOR UNKNOWN INDICATION
     Dosage: 2.5 MG, TID
     Route: 065
  4. DAGRAVIT 30 [Concomitant]
     Indication: VITAMIN SUPPLEMENTATION
     Dosage: UNK, QD
     Route: 065
  5. OLANZAPINE DISINTEGRATING 15MG TABLET [Interacting]
     Active Substance: OLANZAPINE
     Dosage: 40 MG, QD
     Route: 048
  6. OLANZAPINE DISINTEGRATING 15MG TABLET [Interacting]
     Active Substance: OLANZAPINE
     Dosage: 80 MG, UNK
     Route: 048
  7. RITONAVIR. [Interacting]
     Active Substance: RITONAVIR
     Indication: ANTIRETROVIRAL THERAPY
     Dosage: 100 MG, QD
     Route: 065
  8. OLANZAPINE DISINTEGRATING 15MG TABLET [Suspect]
     Active Substance: OLANZAPINE
     Indication: SCHIZOPHRENIA
     Dosage: 15 MG, QD
     Route: 048
  9. RITONAVIR. [Interacting]
     Active Substance: RITONAVIR
     Indication: HIV INFECTION
  10. CALCIUMCARBONAAT/COLECALCIFEROL [Concomitant]
     Indication: MINERAL SUPPLEMENTATION
     Dosage: 500MG/440IE, QD
     Route: 065
  11. PANTOPRAZOLE [Concomitant]
     Active Substance: PANTOPRAZOLE
     Indication: PRODUCT USED FOR UNKNOWN INDICATION
     Dosage: 20 MG, QD
     Route: 065
  12. COLECALCIFEROL [Concomitant]
     Active Substance: CHOLECALCIFEROL
     Indication: PRODUCT USED FOR UNKNOWN INDICATION
     Dosage: 400 IE, BID
     Route: 065

REACTIONS (3)
  - Drug interaction [Recovered/Resolved]
  - Drug resistance [Recovered/Resolved]
  - Psychotic disorder [Recovered/Resolved]
